FAERS Safety Report 4278324-0 (Version None)
Quarter: 2004Q1

REPORT INFORMATION
  Report Type: 
  Country: None (occurrence: None)
  Receive Date: 20040123
  Receipt Date: 20000414
  Transmission Date: 20041129
  Serious: Yes (Other)
  Sender: FDA-Public Use
  Company Number: CA-ROCHE-234355

PATIENT
  Age: 62 Year
  Sex: Female
  Weight: 86.1 kg

DRUGS (13)
  1. TAMIFLU [Suspect]
     Indication: INFLUENZA
     Route: 048
     Dates: start: 20000411, end: 20000413
  2. ACETAMINOPHEN [Concomitant]
     Indication: PAIN
     Route: 048
     Dates: start: 20000409
  3. EMPRACET [Concomitant]
  4. HEPARIN [Concomitant]
     Route: 058
     Dates: start: 20000410
  5. VENTOLIN [Concomitant]
  6. FUROSEMIDE [Concomitant]
     Route: 042
  7. RANITIDINE [Concomitant]
     Route: 042
  8. TIMENTIN [Concomitant]
     Indication: INFECTION
     Route: 042
     Dates: start: 20000411, end: 20000413
  9. FENTANYL [Concomitant]
     Indication: SEDATION
     Route: 042
     Dates: start: 20000413
  10. ATROVENT [Concomitant]
  11. SALBUTAMOL AND IPRATROPIUM BROMIDE [Concomitant]
     Dates: start: 20000410
  12. POTASSIUM CHLORIDE [Concomitant]
     Indication: HYPOKALAEMIA
     Route: 048
  13. VERSED [Concomitant]
     Indication: SEDATION
     Route: 042
     Dates: start: 20000413

REACTIONS (5)
  - ALANINE AMINOTRANSFERASE INCREASED [None]
  - ASPARTATE AMINOTRANSFERASE INCREASED [None]
  - BLOOD ALKALINE PHOSPHATASE INCREASED [None]
  - BLOOD LACTATE DEHYDROGENASE INCREASED [None]
  - HEPATIC ENZYME INCREASED [None]
